FAERS Safety Report 18116852 (Version 5)
Quarter: 2021Q3

REPORT INFORMATION
  Report Type: Spontaneous
  Country: CA (occurrence: CA)
  Receive Date: 20200805
  Receipt Date: 20210804
  Transmission Date: 20211014
  Serious: Yes (Hospitalization, Other)
  Sender: FDA-Public Use
  Company Number: CA-ANIPHARMA-2020-CA-001477

PATIENT
  Age: 68 Year
  Sex: Female

DRUGS (23)
  1. CANDESARTAN CILEXETIL. [Suspect]
     Active Substance: CANDESARTAN CILEXETIL
     Indication: CARDIAC FAILURE CHRONIC
     Dosage: 16 MG DAILY
     Route: 048
  2. VINCRISTINE [Concomitant]
     Active Substance: VINCRISTINE
     Route: 065
  3. CYCLOPHOSPHAMIDE. [Concomitant]
     Active Substance: CYCLOPHOSPHAMIDE
     Route: 065
  4. MELPHALAN. [Concomitant]
     Active Substance: MELPHALAN
     Route: 065
  5. RITUXIMAB. [Concomitant]
     Active Substance: RITUXIMAB
     Route: 065
  6. LETROZOLE. [Concomitant]
     Active Substance: LETROZOLE
     Route: 065
  7. EPLERENONE. [Suspect]
     Active Substance: EPLERENONE
     Dosage: 25 MG DAILY
  8. PERINDOPRIL [Suspect]
     Active Substance: PERINDOPRIL
     Dosage: 4 MG DAILY
     Route: 065
  9. CARVEDILOL. [Suspect]
     Active Substance: CARVEDILOL
     Dosage: 12.5 MG BID / 25 MG UNK
     Route: 065
  10. NITRO?DUR [Suspect]
     Active Substance: NITROGLYCERIN
     Dosage: 0.4 MG QH
     Route: 065
  11. CISPLATIN. [Concomitant]
     Active Substance: CISPLATIN
     Route: 065
  12. FLUOROURACIL. [Concomitant]
     Active Substance: FLUOROURACIL
     Route: 065
  13. PREDNISONE. [Concomitant]
     Active Substance: PREDNISONE
     Route: 065
  14. NITROGLYCERIN. [Suspect]
     Active Substance: NITROGLYCERIN
     Dosage: 0.4 MILLIGRAM 1EVERY 1 HOURS
     Route: 065
  15. EPIRUBICIN [Suspect]
     Active Substance: EPIRUBICIN
     Route: 042
  16. SPIRONOLACTONE. [Suspect]
     Active Substance: SPIRONOLACTONE
     Dosage: 25 MG DAILY
     Route: 065
  17. BISOPROLOL [Suspect]
     Active Substance: BISOPROLOL
     Dosage: 10 MG DAILY / 5 MG DAILY
     Route: 065
  18. DEXAMETHASONE. [Concomitant]
     Active Substance: DEXAMETHASONE
     Route: 065
  19. TAMOXIFEN [Concomitant]
     Active Substance: TAMOXIFEN
     Route: 065
  20. FUROSEMIDE. [Suspect]
     Active Substance: FUROSEMIDE
     Dosage: 40 MG DAILY
     Route: 065
  21. DOXORUBICIN [Suspect]
     Active Substance: DOXORUBICIN
     Route: 065
  22. ENALAPRIL MALEATE. [Suspect]
     Active Substance: ENALAPRIL MALEATE
     Dosage: 5 MG UNK
     Route: 065
  23. CYTARABINE. [Concomitant]
     Active Substance: CYTARABINE
     Route: 065

REACTIONS (10)
  - Left ventricular dilatation [Unknown]
  - Cough [Unknown]
  - Drug ineffective [Unknown]
  - Oedema peripheral [Unknown]
  - Cardiomyopathy [Recovering/Resolving]
  - Hypotension [Unknown]
  - Cardiac failure congestive [Recovering/Resolving]
  - Dyspnoea [Unknown]
  - Pulmonary arterial pressure increased [Unknown]
  - Hypovolaemia [Unknown]
